FAERS Safety Report 10629587 (Version 1)
Quarter: 2014Q4

REPORT INFORMATION
  Report Type: Spontaneous
  Country: US (occurrence: US)
  Receive Date: 20141205
  Receipt Date: 20141205
  Transmission Date: 20150529
  Serious: No
  Sender: FDA-Public Use
  Company Number: US-BRISTOL-MYERS SQUIBB COMPANY-21352638

PATIENT
  Age: 23 Year
  Sex: Male
  Weight: 108.84 kg

DRUGS (4)
  1. ABILIFY [Suspect]
     Active Substance: ARIPIPRAZOLE
     Indication: ASPERGER^S DISORDER
  2. CLONIDINE. [Concomitant]
     Active Substance: CLONIDINE
  3. SERTRALINE [Concomitant]
     Active Substance: SERTRALINE HYDROCHLORIDE
  4. RISPERDAL [Concomitant]
     Active Substance: RISPERIDONE

REACTIONS (4)
  - Vomiting [Unknown]
  - Anxiety [Unknown]
  - Drug dose omission [Unknown]
  - Depression [Unknown]
